FAERS Safety Report 7329287-2 (Version None)
Quarter: 2011Q1

REPORT INFORMATION
  Report Type: 
  Country: None (occurrence: None)
  Receive Date: 20110303
  Receipt Date: 20110301
  Transmission Date: 20110831
  Serious: Yes (Other)
  Sender: FDA-Public Use
  Company Number: B0699945A

PATIENT
  Sex: Female
  Weight: 60 kg

DRUGS (4)
  1. GLUCOPHAGE [Concomitant]
     Indication: DIABETES MELLITUS
     Dates: start: 20090101
  2. APROVEL [Concomitant]
     Dates: start: 19980101, end: 19980101
  3. GLICLAZIDE [Concomitant]
     Indication: DIABETES MELLITUS
     Dosage: 160MCG PER DAY
  4. AVANDIA [Suspect]
     Indication: DIABETES MELLITUS
     Route: 065
     Dates: start: 20080401

REACTIONS (2)
  - BREAST MASS [None]
  - BREAST NEOPLASM [None]
